FAERS Safety Report 6577189-1 (Version None)
Quarter: 2010Q1

REPORT INFORMATION
  Report Type: 
  Country: None (occurrence: None)
  Receive Date: 20100210
  Receipt Date: 20100201
  Transmission Date: 20100710
  Serious: Yes (Hospitalization)
  Sender: FDA-Public Use
  Company Number: PHEH2010US01824

PATIENT
  Sex: Male
  Weight: 84.807 kg

DRUGS (1)
  1. EXJADE [Suspect]
     Indication: MYELODYSPLASTIC SYNDROME
     Dosage: 1750 MG DAILY
     Route: 048
     Dates: start: 20091123, end: 20091228

REACTIONS (2)
  - FLUID RETENTION [None]
  - LEUKAEMIA [None]
